FAERS Safety Report 12807846 (Version 1)
Quarter: 2016Q4

REPORT INFORMATION
  Report Type: Report from Study
  Country: US (occurrence: US)
  Receive Date: 20161004
  Receipt Date: 20161004
  Transmission Date: 20170207
  Serious: Yes (Hospitalization, Other)
  Sender: FDA-Public Use
  Company Number: US-GILEAD-2016-0236449

PATIENT
  Age: 27 Year
  Sex: Female

DRUGS (2)
  1. AMBRISENTAN [Suspect]
     Active Substance: AMBRISENTAN
     Indication: PRODUCT USED FOR UNKNOWN INDICATION
     Dosage: 5 MG, QD
     Route: 065
     Dates: start: 20160801
  2. ADCIRCA [Concomitant]
     Active Substance: TADALAFIL

REACTIONS (6)
  - Dyspnoea exertional [Unknown]
  - Arteriovenous malformation [Unknown]
  - Anxiety [Unknown]
  - Palpitations [Unknown]
  - Platelet count decreased [Unknown]
  - Haemoptysis [Unknown]
